FAERS Safety Report 19956222 (Version 1)
Quarter: 2021Q4

REPORT INFORMATION
  Report Type: Spontaneous
  Country: DE (occurrence: DE)
  Receive Date: 20211014
  Receipt Date: 20211014
  Transmission Date: 20220303
  Serious: Yes (Hospitalization)
  Sender: FDA-Public Use
  Company Number: DE-ADRED-06672-01

PATIENT
  Age: 81 Year
  Sex: Female

DRUGS (5)
  1. VERAPAMIL [Suspect]
     Active Substance: VERAPAMIL HYDROCHLORIDE
     Indication: Product used for unknown indication
     Dosage: 80 MILLIGRAM, QD (80 MG, 1-0-0-0, TABLETTEN)
  2. FLUTICASONE PROPIONATE\SALMETEROL XINAFOATE [Concomitant]
     Active Substance: FLUTICASONE PROPIONATE\SALMETEROL XINAFOATE
     Dosage: UNK UNK, BID (500|50 MCG, 1-0-1-0, DISKUS)
  3. LEVOTHYROXINE SODIUM [Concomitant]
     Active Substance: LEVOTHYROXINE SODIUM
     Dosage: 75 MICROGRAM, QD (75 MCG, 1-0-0-0, TABLETTEN)
  4. CANDESARTAN [Concomitant]
     Active Substance: CANDESARTAN
     Dosage: 4 MILLIGRAM, QD (4 MG, 1-0-0-0, TABLETTEN)
  5. METHOTREXATE (METHOTREXATE SODIUM) [Concomitant]
     Active Substance: METHOTREXATE SODIUM
     Dosage: 17.5MG, SOLUTION FOR INJECTION/INFUSION
     Route: 030

REACTIONS (7)
  - Hypertension [Unknown]
  - Performance status decreased [Unknown]
  - Angina pectoris [Unknown]
  - Dizziness [Unknown]
  - Bradycardia [Unknown]
  - Fatigue [Unknown]
  - Headache [Unknown]
